FAERS Safety Report 5840226-3 (Version None)
Quarter: 2008Q3

REPORT INFORMATION
  Report Type: 
  Country: None (occurrence: None)
  Receive Date: 20080730
  Receipt Date: 20080408
  Transmission Date: 20090109
  Serious: No
  Sender: FDA-Public Use
  Company Number: PHEH2008US03579

PATIENT
  Sex: Male

DRUGS (3)
  1. TEKTURNA [Suspect]
     Dosage: 150 MG ; 300 MG
     Dates: start: 20080215, end: 20080305
  2. TEKTURNA [Suspect]
     Dosage: 150 MG ; 300 MG
     Dates: start: 20080306
  3. CYMBALTA [Suspect]
     Dosage: QD

REACTIONS (1)
  - SOMNOLENCE [None]
